FAERS Safety Report 10647345 (Version 2)
Quarter: 2014Q4

REPORT INFORMATION
  Report Type: Report from Study
  Country: CA (occurrence: CA)
  Receive Date: 20141211
  Receipt Date: 20141219
  Transmission Date: 20150529
  Serious: Yes (Other)
  Sender: FDA-Public Use
  Company Number: PHHY2014CA162396

PATIENT
  Age: 48 Year
  Sex: Female

DRUGS (2)
  1. EXTAVIA [Suspect]
     Active Substance: INTERFERON BETA-1B
     Indication: RELAPSING-REMITTING MULTIPLE SCLEROSIS
     Dosage: 8 MIU, QOD
     Route: 058
     Dates: start: 20110323
  2. EXTAVIA [Suspect]
     Active Substance: INTERFERON BETA-1B
     Dosage: UNK (LEFT LEG)
     Route: 058
     Dates: start: 20141130

REACTIONS (8)
  - Corneal dystrophy [Unknown]
  - Feeling abnormal [Unknown]
  - Limb discomfort [Unknown]
  - Paraesthesia [Unknown]
  - Skin exfoliation [Unknown]
  - Multiple sclerosis relapse [Unknown]
  - Tremor [Unknown]
  - Injection site bruising [Unknown]

NARRATIVE: CASE EVENT DATE: 201411
